FAERS Safety Report 4499732-9 (Version None)
Quarter: 2004Q4

REPORT INFORMATION
  Report Type: 
  Country: None (occurrence: None)
  Receive Date: 20041112
  Receipt Date: 20040825
  Transmission Date: 20050328
  Serious: Yes (Other)
  Sender: FDA-Public Use
  Company Number: PHEH2004US09248

PATIENT
  Age: 59 Year
  Sex: Male
  Weight: 86 kg

DRUGS (5)
  1. DIOVAN HCT [Suspect]
     Indication: HYPERTENSION
     Dosage: ONE TABLET
     Route: 048
     Dates: start: 20040802
  2. CATAPRES-TTS-1 [Concomitant]
  3. TRI-CHLOR [Concomitant]
  4. POTASSIUM [Concomitant]
  5. DIOVAN [Suspect]
     Dosage: UNK
     Route: 048

REACTIONS (6)
  - BONE DENSITY DECREASED [None]
  - GINGIVAL DISORDER [None]
  - GINGIVAL HYPERPLASIA [None]
  - GINGIVAL OEDEMA [None]
  - GINGIVITIS [None]
  - TOOTH LOSS [None]
